FAERS Safety Report 8227655-8 (Version None)
Quarter: 2012Q1

REPORT INFORMATION
  Report Type: 
  Country: None (occurrence: None)
  Receive Date: 20120322
  Receipt Date: 20120316
  Transmission Date: 20120608
  Serious: Yes (Death)
  Sender: FDA-Public Use
  Company Number: US-PFIZER INC-2012071039

PATIENT
  Sex: Female

DRUGS (1)
  1. CAMPTOSAR [Suspect]
     Indication: GASTROOESOPHAGEAL CANCER
     Dosage: 256 UNK, WEEKLY

REACTIONS (1)
  - DEATH [None]
